FAERS Safety Report 7840953-2 (Version None)
Quarter: 2011Q4

REPORT INFORMATION
  Report Type: 
  Country: None (occurrence: None)
  Receive Date: 20111021
  Receipt Date: 20111021
  Transmission Date: 20120403
  Serious: Yes (Other)
  Sender: FDA-Public Use
  Company Number: None

PATIENT
  Age: 83 Year
  Sex: Male
  Weight: 79.3795 kg

DRUGS (9)
  1. ADVAIR DISKUS 100/50 [Concomitant]
  2. AVODART [Concomitant]
  3. SOME SUPPLEMENTS [Concomitant]
  4. UROXATRAL [Concomitant]
  5. ARICEPT [Suspect]
     Dates: start: 20110715
  6. DIOVAN [Concomitant]
  7. MANY VITAMINS [Concomitant]
  8. NAMENDA [Concomitant]
  9. COUMADIN [Concomitant]

REACTIONS (3)
  - STRESS [None]
  - WRONG TECHNIQUE IN DRUG USAGE PROCESS [None]
  - NIGHTMARE [None]
